FAERS Safety Report 10916040 (Version 1)
Quarter: 2015Q1

REPORT INFORMATION
  Report Type: Spontaneous
  Country: US (occurrence: None)
  Receive Date: 20150311
  Receipt Date: 20150311
  Transmission Date: 20150721
  Serious: Yes (Other)
  Sender: FDA-Public Use
  Company Number: None

PATIENT
  Age: 67 Year
  Sex: Female
  Weight: 56.7 kg

DRUGS (10)
  1. HYDROMET [Suspect]
     Active Substance: HOMATROPINE METHYLBROMIDE\HYDROCODONE BITARTRATE
     Indication: COUGH
     Dosage: 1 TEASPOON, MOUTH
     Dates: start: 20150211, end: 20150213
  2. MULTIVITAMIN [Concomitant]
     Active Substance: VITAMINS
  3. HYCODAN [Suspect]
     Active Substance: HOMATROPINE METHYLBROMIDE\HYDROCODONE BITARTRATE
  4. FLAXSEED [Concomitant]
     Active Substance: FLAX SEED
  5. VIT B [Concomitant]
     Active Substance: VITAMINS
  6. VIT. C [Concomitant]
  7. CALCIUM [Concomitant]
     Active Substance: CALCIUM
  8. RITUXAN [Concomitant]
     Active Substance: RITUXIMAB
  9. TURMERIC [Concomitant]
     Active Substance: TURMERIC
  10. VITAMIN D [Concomitant]
     Active Substance: CHOLECALCIFEROL

REACTIONS (2)
  - Hallucination, auditory [None]
  - Dyskinesia [None]
